FAERS Safety Report 15669031 (Version 5)
Quarter: 2019Q1

REPORT INFORMATION
  Report Type: Spontaneous
  Country: AR (occurrence: AR)
  Receive Date: 20181129
  Receipt Date: 20190222
  Transmission Date: 20190417
  Serious: Yes (Other)
  Sender: FDA-Public Use
  Company Number: AR-REGENERON PHARMACEUTICALS, INC.-2018-45765

PATIENT

DRUGS (1)
  1. EYLEA [Suspect]
     Active Substance: AFLIBERCEPT
     Indication: DIABETIC RETINAL OEDEMA
     Dosage: 1 DF, LEFT EYE, NUMBER OF DOSES PRIOR TO EVENT NOT REPORTED
     Dates: start: 20181113, end: 20181113

REACTIONS (8)
  - Iris haemorrhage [Not Recovered/Not Resolved]
  - Noninfective retinitis [Not Recovered/Not Resolved]
  - Endophthalmitis [Recovering/Resolving]
  - Anterior chamber flare [Not Recovered/Not Resolved]
  - Visual impairment [Not Recovered/Not Resolved]
  - Pupillary disorder [Not Recovered/Not Resolved]
  - Vitreous floaters [Not Recovered/Not Resolved]
  - Visual acuity reduced [Unknown]

NARRATIVE: CASE EVENT DATE: 20181116
